FAERS Safety Report 11622827 (Version 1)
Quarter: 2015Q4

REPORT INFORMATION
  Report Type: Spontaneous
  Country: US (occurrence: None)
  Receive Date: 20151009
  Receipt Date: 20151009
  Transmission Date: 20160304
  Serious: Yes (Death)
  Sender: FDA-Public Use
  Company Number: None

PATIENT
  Age: 69 Year
  Sex: Male
  Weight: 77.8 kg

DRUGS (8)
  1. APIXABAN [Concomitant]
     Active Substance: APIXABAN
  2. APRESOLINE HYDROCHLORIDE [Concomitant]
     Active Substance: HYDRALAZINE HYDROCHLORIDE
  3. VINCRISTINE SULFATE. [Suspect]
     Active Substance: VINCRISTINE SULFATE
     Dates: end: 20150910
  4. ATORVASTATIN [Concomitant]
     Active Substance: ATORVASTATIN
  5. CYCLOPHOSPHAMIDE. [Suspect]
     Active Substance: CYCLOPHOSPHAMIDE
     Dates: end: 20150910
  6. PREDNISONE. [Suspect]
     Active Substance: PREDNISONE
     Dates: end: 20150914
  7. RITUXIMAB [Suspect]
     Active Substance: RITUXIMAB
     Dates: end: 20150910
  8. DOXORUBICIN HYDROCHLORIDE. [Suspect]
     Active Substance: DOXORUBICIN HYDROCHLORIDE
     Dates: end: 20150910

REACTIONS (1)
  - Death [None]

NARRATIVE: CASE EVENT DATE: 20150925
